FAERS Safety Report 13264695 (Version 1)
Quarter: 2017Q1

REPORT INFORMATION
  Report Type: Spontaneous
  Country: US (occurrence: US)
  Receive Date: 20170223
  Receipt Date: 20170223
  Transmission Date: 20170428
  Serious: Yes (Life-Threatening)
  Sender: FDA-Public Use
  Company Number: None

PATIENT
  Age: 66 Year
  Sex: Male
  Weight: 85.6 kg

DRUGS (2)
  1. CETUXIMAB. [Suspect]
     Active Substance: CETUXIMAB
     Indication: SQUAMOUS CELL CARCINOMA OF SKIN
     Dosage: ?          OTHER FREQUENCY:X 1 (LOADING DOSE);?
     Route: 042
     Dates: start: 20170222, end: 20170222
  2. CETUXIMAB. [Suspect]
     Active Substance: CETUXIMAB
     Indication: SQUAMOUS CELL CARCINOMA OF SKIN
     Dosage: ?          OTHER FREQUENCY:X 1 (LOADING DOSE);?
     Route: 042
     Dates: start: 20170222, end: 20170222

REACTIONS (5)
  - Dyspnoea [None]
  - Infusion related reaction [None]
  - Loss of consciousness [None]
  - Pulse absent [None]
  - Anaphylactic reaction [None]

NARRATIVE: CASE EVENT DATE: 20170222
